FAERS Safety Report 8850515 (Version 1)
Quarter: 2012Q4

REPORT INFORMATION
  Report Type: Report from Study
  Country: US (occurrence: US)
  Receive Date: 20121019
  Receipt Date: 20121019
  Transmission Date: 20130627
  Serious: Yes (Other)
  Sender: FDA-Public Use
  Company Number: US-ROCHE-1146643

PATIENT
  Age: 48 Year
  Sex: Female

DRUGS (3)
  1. PEG-INTERFERON ALFA 2A [Suspect]
     Indication: HEPATITIS C
     Route: 065
  2. RIBAVIRIN [Suspect]
     Indication: HEPATITIS C
     Route: 065
  3. BLINDED BMS-986094 [Suspect]
     Indication: HEPATITIS C
     Route: 065
     Dates: start: 20111018, end: 20120109

REACTIONS (1)
  - Ejection fraction decreased [Unknown]
